FAERS Safety Report 9532778 (Version 2)
Quarter: 2013Q3

REPORT INFORMATION
  Report Type: Spontaneous
  Country: US (occurrence: US)
  Receive Date: 20130918
  Receipt Date: 20130918
  Transmission Date: 20140515
  Serious: No
  Sender: FDA-Public Use
  Company Number: US-PURDUE-USA-2011-0075429

PATIENT
  Age: 45 Year
  Sex: Male
  Weight: 67.57 kg

DRUGS (1)
  1. BUTRANS [Suspect]
     Indication: PAIN
     Dosage: 20 MCG, Q1H
     Route: 062
     Dates: start: 2011

REACTIONS (12)
  - Application site discolouration [Unknown]
  - Abasia [Unknown]
  - Mydriasis [Unknown]
  - Dizziness [Unknown]
  - Application site perspiration [Unknown]
  - Product adhesion issue [Unknown]
  - Application site dryness [Unknown]
  - Somnolence [Unknown]
  - Wrong technique in drug usage process [Unknown]
  - Application site swelling [Unknown]
  - Application site erythema [Unknown]
  - Unevaluable event [Unknown]
